FAERS Safety Report 5870301-9 (Version None)
Quarter: 2008Q3

REPORT INFORMATION
  Report Type: 
  Country: None (occurrence: None)
  Receive Date: 20080904
  Receipt Date: 20070829
  Transmission Date: 20090109
  Serious: No
  Sender: FDA-Public Use
  Company Number: US-BRISTOL-MYERS SQUIBB COMPANY-13892385

PATIENT
  Age: 49 Year
  Sex: Female

DRUGS (12)
  1. DEFINITY [Suspect]
     Route: 042
  2. PEN-VEE K [Concomitant]
  3. MORPHINE [Concomitant]
  4. MS CONTIN [Concomitant]
  5. LISINOPRIL [Concomitant]
  6. NEURONTIN [Concomitant]
  7. ELAVIL [Concomitant]
  8. PEPCID [Concomitant]
  9. MAXIDEX [Concomitant]
  10. METOPROLOL TARTRATE [Concomitant]
  11. NORVASC [Concomitant]
  12. DULCOLAX [Concomitant]

REACTIONS (3)
  - INFUSION SITE PAIN [None]
  - INJECTION SITE DISCOLOURATION [None]
  - URTICARIA [None]
